FAERS Safety Report 5413186-7 (Version None)
Quarter: 2007Q3

REPORT INFORMATION
  Report Type: 
  Country: None (occurrence: None)
  Receive Date: 20070814
  Receipt Date: 20070803
  Transmission Date: 20080115
  Serious: Yes (Other)
  Sender: FDA-Public Use
  Company Number: PHFR2007GB01889

PATIENT
  Age: 51 Year
  Sex: Male

DRUGS (6)
  1. CLOZARIL [Suspect]
     Indication: SCHIZOPHRENIA
     Dosage: 100MG MANE, 300MG NOCTE
     Route: 048
     Dates: start: 20070525
  2. LISINOPRIL [Concomitant]
     Dosage: 10MG/DAY
     Route: 048
  3. AMISULPRIDE [Concomitant]
     Indication: PSYCHOTIC DISORDER
     Dosage: 200 MG, BID
     Route: 048
  4. GLICLAZIDE [Concomitant]
     Dosage: 160 MG, BID
     Route: 048
  5. SIMVASTATIN [Concomitant]
     Dosage: 40MG/DAY
     Route: 048
  6. DEPAKOTE [Concomitant]
     Dosage: 750 MG, BID
     Route: 048

REACTIONS (5)
  - BLOOD GLUCOSE FLUCTUATION [None]
  - DIABETES MELLITUS INADEQUATE CONTROL [None]
  - DIZZINESS [None]
  - RASH MACULAR [None]
  - VISION BLURRED [None]
